FAERS Safety Report 8772834 (Version 1)
Quarter: 2012Q4

REPORT INFORMATION
  Report Type: 
  Country: BR (occurrence: BR)
  Receive Date: 20120907
  Receipt Date: 20120907
  Transmission Date: 20130627
  Serious: Yes (Hospitalization)
  Sender: FDA-Public Use
  Company Number: BR-PFIZER INC-2012216219

PATIENT
  Age: 84 Year
  Sex: Female

DRUGS (6)
  1. VIAGRA [Suspect]
     Indication: LUNG DISORDER
     Dosage: 25 mg, 2x/day
     Route: 048
     Dates: start: 2011
  2. ANCORON [Concomitant]
     Indication: HEART RATE
     Dosage: 1 DF, 3x/day
  3. APRESOLINE [Concomitant]
     Indication: BLOOD PRESSURE
     Dosage: 1 DF, 3x/day
  4. CARDIZEM [Concomitant]
     Indication: LUNG DISORDER
     Dosage: 1 DF, 2x/day
     Dates: start: 201112
  5. FUROSEMIDE [Concomitant]
     Indication: DIURETIC THERAPY
     Dosage: 1 DF, 3x/day
  6. OMEPRAZOLE [Concomitant]
     Indication: PROPHYLAXIS OF NAUSEA AND VOMITING
     Dosage: 1 DF, 1x/day

REACTIONS (2)
  - Lung disorder [Unknown]
  - Off label use [Unknown]
